FAERS Safety Report 10568747 (Version 2)
Quarter: 2014Q4

REPORT INFORMATION
  Report Type: Spontaneous
  Country: US (occurrence: US)
  Receive Date: 20141106
  Receipt Date: 20141110
  Transmission Date: 20150529
  Serious: Yes (Hospitalization, Other)
  Sender: FDA-Public Use
  Company Number: US-TEVA-519368USA

PATIENT
  Age: 74 Year
  Sex: Female
  Weight: 65.83 kg

DRUGS (8)
  1. SYNRIBO [Suspect]
     Active Substance: OMACETAXINE MEPESUCCINATE
     Dates: start: 20141017
  2. METOPROLOL [Concomitant]
     Active Substance: METOPROLOL
  3. ALLOPURINOL. [Concomitant]
     Active Substance: ALLOPURINOL
     Dosage: 100 MILLIGRAM DAILY;
  4. ALEVE [Suspect]
     Active Substance: NAPROXEN SODIUM
     Dosage: 4 DOSAGE FORMS DAILY;
  5. ASPIRIN. [Suspect]
     Active Substance: ASPIRIN
     Dosage: 81 MILLIGRAM DAILY;
  6. LETROZOLE. [Concomitant]
     Active Substance: LETROZOLE
     Dosage: 25 MILLIGRAM DAILY;
  7. FOLIC ACID. [Concomitant]
     Active Substance: FOLIC ACID
     Dosage: 1 MILLIGRAM DAILY; (ALSO REPORTED AS DAILY DOSE 2 MG)
  8. HYDROXYUREA. [Suspect]
     Active Substance: HYDROXYUREA
     Dosage: 500 MILLIGRAM DAILY; (ALSO REPORTED AS DAILY DOSE 1500 MG)

REACTIONS (3)
  - Expired product administered [Unknown]
  - Haemoglobin decreased [Unknown]
  - Lower gastrointestinal haemorrhage [Unknown]

NARRATIVE: CASE EVENT DATE: 20141024
